FAERS Safety Report 17114794 (Version 2)
Quarter: 2019Q4

REPORT INFORMATION
  Report Type: Report from Study
  Country: US (occurrence: US)
  Receive Date: 20191205
  Receipt Date: 20191212
  Transmission Date: 20200122
  Serious: Yes (Other)
  Sender: FDA-Public Use
  Company Number: US-GILEAD-2019-0440847

PATIENT
  Age: 49 Year
  Sex: Female

DRUGS (1)
  1. AMBRISENTAN [Suspect]
     Active Substance: AMBRISENTAN
     Indication: PRODUCT USED FOR UNKNOWN INDICATION
     Dosage: 10 MG, UNKNOWN FREQUENCY
     Route: 065
     Dates: start: 20091202

REACTIONS (4)
  - Ankle fracture [Not Recovered/Not Resolved]
  - Wheelchair user [Not Recovered/Not Resolved]
  - Fall [Recovered/Resolved]
  - Cognitive disorder [Not Recovered/Not Resolved]
